FAERS Safety Report 25648402 (Version 1)
Quarter: 2025Q3

REPORT INFORMATION
  Report Type: Spontaneous
  Country: US (occurrence: US)
  Receive Date: 20250806
  Receipt Date: 20250806
  Transmission Date: 20251021
  Serious: No
  Sender: ROCHE
  Company Number: US-ROCHE-10000351691

PATIENT
  Age: 34 Year
  Sex: Female
  Weight: 191.1 kg

DRUGS (10)
  1. ACTEMRA ACTPEN [Suspect]
     Active Substance: TOCILIZUMAB
     Indication: Rheumatoid arthritis
     Route: 058
     Dates: start: 20250706, end: 20250707
  2. PREDNISONE [Concomitant]
     Active Substance: PREDNISONE
  3. DICLOFENAC [Concomitant]
     Active Substance: DICLOFENAC
  4. PREGABALIN [Concomitant]
     Active Substance: PREGABALIN
  5. FLUOXETINE [Concomitant]
     Active Substance: FLUOXETINE HYDROCHLORIDE
  6. CYCLOBENZAPRINE [Concomitant]
     Active Substance: CYCLOBENZAPRINE
  7. VRAYLAR [Concomitant]
     Active Substance: CARIPRAZINE
  8. METHYLPHENIDATE [Concomitant]
     Active Substance: METHYLPHENIDATE
  9. GEMTESA [Concomitant]
     Active Substance: VIBEGRON
  10. HYDRALAZINE [Concomitant]
     Active Substance: HYDRALAZINE HYDROCHLORIDE

REACTIONS (1)
  - Ill-defined disorder [Unknown]

NARRATIVE: CASE EVENT DATE: 20250729
